FAERS Safety Report 4340326-3 (Version None)
Quarter: 2004Q2

REPORT INFORMATION
  Report Type: 
  Country: None (occurrence: None)
  Receive Date: 20040412
  Receipt Date: 20040330
  Transmission Date: 20050107
  Serious: Yes (Hospitalization, Other)
  Sender: FDA-Public Use
  Company Number: 2004022027

PATIENT
  Age: 63 Year
  Sex: Male
  Weight: 74 kg

DRUGS (5)
  1. SORTIS (ATROVASTATIN) [Suspect]
     Indication: HYPERLIPIDAEMIA
     Dosage: 40 MG (DAILY), ORAL
     Route: 048
     Dates: start: 20000101
  2. VERAPAMIL HCL [Suspect]
     Indication: HYPERTENSION
     Dosage: 1080 MG (TID), ORAL
     Route: 048
     Dates: start: 20030501
  3. PHENOPROCOUMON (PHENPROCOUMON) [Suspect]
     Indication: THROMBOSIS PROPHYLAXIS
     Dosage: 1.5 MG (DAILY), ORAL
     Route: 048
     Dates: start: 20030801, end: 20030909
  4. APELIX ACE (PIRETANIDE, RAMIPRIL) [Concomitant]
  5. FERRO ^SANOL^ /OLD FORM  (AMINOACETIC ACID, FERROUS SULFATE) [Concomitant]

REACTIONS (11)
  - ANGIODYSPLASIA [None]
  - CAROTID ARTERY THROMBOSIS [None]
  - CEREBROVASCULAR ACCIDENT [None]
  - DRUG INTERACTION [None]
  - GASTRITIS HAEMORRHAGIC [None]
  - GASTROINTESTINAL HAEMORRHAGE [None]
  - MELAENA [None]
  - MYOCARDIAL INFARCTION [None]
  - OVERDOSE [None]
  - PROTHROMBIN TIME PROLONGED [None]
  - RENAL FAILURE ACUTE [None]
